FAERS Safety Report 10906850 (Version 1)
Quarter: 2015Q1

REPORT INFORMATION
  Report Type: Spontaneous
  Country: US (occurrence: None)
  Receive Date: 20150309
  Receipt Date: 20150309
  Transmission Date: 20150721
  Serious: Yes (Life-Threatening, Hospitalization, Disabling, Other)
  Sender: FDA-Public Use
  Company Number: None

PATIENT
  Age: 26 Year
  Sex: Female
  Weight: 78.02 kg

DRUGS (4)
  1. PARAGARD T 380A [Suspect]
     Active Substance: COPPER
     Indication: CONTRACEPTION
     Dates: start: 20100111, end: 20140714
  2. LORAZAPAM [Concomitant]
     Active Substance: LORAZEPAM
  3. AMYLITRIPTYLINE [Concomitant]
  4. ADVIL [Concomitant]
     Active Substance: IBUPROFEN

REACTIONS (5)
  - Embedded device [None]
  - Psychotic disorder [None]
  - Abdominal pain [None]
  - Device breakage [None]
  - Dyspareunia [None]

NARRATIVE: CASE EVENT DATE: 20140714
